FAERS Safety Report 7107412-6 (Version None)
Quarter: 2010Q4

REPORT INFORMATION
  Report Type: 
  Country: None (occurrence: None)
  Receive Date: 20101112
  Receipt Date: 20101112
  Transmission Date: 20110411
  Serious: No
  Sender: FDA-Public Use
  Company Number: None

PATIENT
  Sex: Male
  Weight: 116.9373 kg

DRUGS (2)
  1. OXYCODONE HCL [Suspect]
     Indication: BACK PAIN
     Dosage: 40MG QID AND 20MG QHS FIVE TIMES PER DAY PO
     Route: 048
     Dates: start: 20100915, end: 20100920
  2. OXYCODONE HCL [Suspect]
     Indication: PAIN
     Dosage: 40MG QID AND 20MG QHS FIVE TIMES PER DAY PO
     Route: 048
     Dates: start: 20100915, end: 20100920

REACTIONS (3)
  - DRUG INEFFECTIVE [None]
  - PRODUCT FORMULATION ISSUE [None]
  - VOMITING [None]
